FAERS Safety Report 6617378-0 (Version None)
Quarter: 2010Q1

REPORT INFORMATION
  Report Type: 
  Country: None (occurrence: None)
  Receive Date: 20100307
  Receipt Date: 20100204
  Transmission Date: 20100710
  Serious: No
  Sender: FDA-Public Use
  Company Number: US-BAYER-200943382NA

PATIENT
  Age: 45 Year
  Sex: Female

DRUGS (2)
  1. ULTRAVIST 370 [Suspect]
     Indication: COMPUTERISED TOMOGRAM ABDOMEN
     Dosage: TOTAL DAILY DOSE: 100 ML  UNIT DOSE: 500 ML
     Route: 042
     Dates: start: 20091211, end: 20091211
  2. READI-CAT [Concomitant]
     Route: 048

REACTIONS (4)
  - DYSPNOEA [None]
  - HEADACHE [None]
  - NAUSEA [None]
  - VOMITING [None]
